FAERS Safety Report 5434273-3 (Version None)
Quarter: 2007Q3

REPORT INFORMATION
  Report Type: 
  Country: None (occurrence: None)
  Receive Date: 20070828
  Receipt Date: 20070828
  Transmission Date: 20080115
  Serious: No
  Sender: FDA-Public Use
  Company Number: None

PATIENT
  Sex: Male
  Weight: 64.4108 kg

DRUGS (3)
  1. CIPROFLOXACIN HCL [Suspect]
     Indication: BRONCHITIS
     Dosage: 500MG BID ORAL
     Route: 048
     Dates: start: 20070701
  2. CIPROFLOXACIN HCL [Suspect]
     Indication: CHRONIC OBSTRUCTIVE PULMONARY DISEASE
     Dosage: 500MG BID ORAL
     Route: 048
     Dates: start: 20070701
  3. CIPROFLOXACIN HCL [Suspect]
     Indication: SINUSITIS
     Dosage: 500MG BID ORAL
     Route: 048
     Dates: start: 20070701

REACTIONS (2)
  - DRUG INEFFECTIVE [None]
  - PHARMACEUTICAL PRODUCT COMPLAINT [None]
